FAERS Safety Report 13610253 (Version 1)
Quarter: 2017Q2

REPORT INFORMATION
  Report Type: Spontaneous
  Country: JP (occurrence: JP)
  Receive Date: 20170605
  Receipt Date: 20170605
  Transmission Date: 20170830
  Serious: Yes (Hospitalization)
  Sender: FDA-Public Use
  Company Number: JP-ACCORD-052253

PATIENT
  Age: 68 Year
  Sex: Female

DRUGS (5)
  1. CHLORPROMAZINE. [Concomitant]
     Active Substance: CHLORPROMAZINE
     Indication: SCHIZOPHRENIA
  2. QUETIAPINE. [Suspect]
     Active Substance: QUETIAPINE
     Indication: SCHIZOPHRENIA
  3. ZOTEPINE [Concomitant]
     Active Substance: ZOTEPINE
     Indication: SCHIZOPHRENIA
  4. PROMETHAZINE/PROMETHAZINE HYDROCHLORIDE/PROMETHAZINE HYDROXYETHYL CHLO/PROMETHAZINE METHYLENE DISALI [Concomitant]
     Indication: SCHIZOPHRENIA
  5. FLUNITRAZEPAM [Concomitant]
     Active Substance: FLUNITRAZEPAM
     Indication: SCHIZOPHRENIA

REACTIONS (1)
  - Symptom masked [Unknown]
